FAERS Safety Report 5963378-3 (Version None)
Quarter: 2008Q4

REPORT INFORMATION
  Report Type: 
  Country: None (occurrence: None)
  Receive Date: 20081124
  Receipt Date: 20081117
  Transmission Date: 20090506
  Serious: Yes (Hospitalization)
  Sender: FDA-Public Use
  Company Number: B0543395A

PATIENT
  Age: 84 Year
  Sex: Female
  Weight: 53 kg

DRUGS (5)
  1. VALTREX [Suspect]
     Indication: HERPES ZOSTER
     Dosage: 1000MG THREE TIMES PER DAY
     Route: 048
     Dates: start: 20081018, end: 20081019
  2. GASTER D [Concomitant]
     Dosage: 10MG PER DAY
     Route: 048
     Dates: end: 20081020
  3. NORVASC [Concomitant]
     Dosage: 5MG PER DAY
     Route: 048
     Dates: start: 20081020
  4. ARTIST [Concomitant]
     Dosage: 2.5MG PER DAY
     Route: 048
     Dates: start: 20081020
  5. ACYCLOVIR [Concomitant]
     Dates: start: 20081029, end: 20081031

REACTIONS (5)
  - ALTERED STATE OF CONSCIOUSNESS [None]
  - DIZZINESS [None]
  - RENAL FAILURE [None]
  - RESTLESSNESS [None]
  - URINARY RETENTION [None]
